FAERS Safety Report 6238026-8 (Version None)
Quarter: 2009Q2

REPORT INFORMATION
  Report Type: 
  Country: None (occurrence: None)
  Receive Date: 20090622
  Receipt Date: 20090617
  Transmission Date: 20091009
  Serious: Yes (Hospitalization)
  Sender: FDA-Public Use
  Company Number: 10053841

PATIENT
  Age: 33 Year
  Sex: Male

DRUGS (7)
  1. ZERIT [Suspect]
     Indication: HIV INFECTION
     Route: 048
     Dates: start: 19980615, end: 19990330
  2. VIDEX [Suspect]
     Indication: ACQUIRED IMMUNODEFICIENCY SYNDROME
  3. CYCLOPHOSPHAMIDE [Suspect]
     Dates: start: 19990119, end: 19990426
  4. EPIVIR [Suspect]
     Indication: HIV INFECTION
     Route: 048
     Dates: start: 19980615, end: 19990330
  5. SOLUPRED [Suspect]
     Dates: start: 19980615
  6. UROMITEXAN INJ [Concomitant]
     Dates: start: 19990119
  7. ONDANSETRON HCL [Concomitant]
     Dates: start: 19990119

REACTIONS (1)
  - POLYNEUROPATHY [None]
